FAERS Safety Report 9824219 (Version 1)
Quarter: 2014Q1

REPORT INFORMATION
  Report Type: Spontaneous
  Country: US (occurrence: US)
  Receive Date: 20140116
  Receipt Date: 20140116
  Transmission Date: 20141002
  Serious: Yes (Death)
  Sender: FDA-Public Use
  Company Number: US-ROCHE-1334902

PATIENT
  Age: 71 Year
  Sex: Female

DRUGS (7)
  1. XELODA [Suspect]
     Indication: BREAST CANCER
     Route: 048
     Dates: start: 20131229, end: 20140113
  2. LISINOPRIL [Concomitant]
  3. JANUMET [Concomitant]
  4. LORAZEPAM [Concomitant]
  5. DEXAMETHASONE [Concomitant]
  6. CITALOPRAM [Concomitant]
  7. PEPCID [Concomitant]

REACTIONS (1)
  - Death [Fatal]
